FAERS Safety Report 23441290 (Version 1)
Quarter: 2024Q1

REPORT INFORMATION
  Report Type: Spontaneous
  Country: JP (occurrence: JP)
  Receive Date: 20240125
  Receipt Date: 20240125
  Transmission Date: 20240409
  Serious: Yes (Other)
  Sender: FDA-Public Use
  Company Number: JP-TAIHOP-2024-000084

PATIENT
  Age: 53 Year
  Sex: Male
  Weight: 77.4 kg

DRUGS (8)
  1. LONSURF [Suspect]
     Active Substance: TIPIRACIL HYDROCHLORIDE\TRIFLURIDINE
     Indication: Colon cancer
     Dosage: CYCLE 1. FREQUENCY UNKNOWN?DAILY DOSE: 130 MILLIGRAM(S)
     Route: 048
     Dates: start: 20231201, end: 20231212
  2. LONSURF [Suspect]
     Active Substance: TIPIRACIL HYDROCHLORIDE\TRIFLURIDINE
     Dosage: CYCLE AND FREQUENCY UNKNOWN?DAILY DOSE: 120 MILLIGRAM(S)
     Route: 048
     Dates: start: 202401
  3. VONOPRAZAN FUMARATE [Concomitant]
     Active Substance: VONOPRAZAN FUMARATE
     Indication: Product used for unknown indication
     Dosage: OD, 1 TABLET IN 1 DOSE (AFTER DINNER)
     Route: 048
  4. CALONAL [Concomitant]
     Active Substance: ACETAMINOPHEN
     Indication: Product used for unknown indication
     Dosage: 3 TABLETS IN 1 DOSE (AT BED TIME)
     Route: 048
  5. MAGNESIUM OXIDE [Concomitant]
     Active Substance: MAGNESIUM OXIDE
     Indication: Product used for unknown indication
     Dosage: 6 TABLETS IN 3 DIVIDED DOSES (AFTER EVERY MEAL)
     Route: 048
  6. SYMPROIC [Concomitant]
     Active Substance: NALDEMEDINE
     Indication: Product used for unknown indication
     Dosage: 1 TABLET IN 1 DOSE (AFTER EVERY MEAL)
     Route: 048
  7. MOVICOL [Concomitant]
     Active Substance: POLYETHYLENE GLYCOL 3350\POTASSIUM CHLORIDE\SODIUM BICARBONATE\SODIUM CHLORIDE
     Indication: Product used for unknown indication
     Dosage: COMBINATION POWDER, 2 PACKETS IN 1 DOSE (AFTER BREAKFAST)?DOSE WAS ADJUSTABLE
     Route: 048
  8. OXYCODONE HYDROCHLORIDE [Concomitant]
     Active Substance: OXYCODONE HYDROCHLORIDE
     Indication: Product used for unknown indication
     Dosage: DOSE WAS ADJUSTABLE

REACTIONS (3)
  - Myelosuppression [Recovered/Resolved]
  - Lymphangiosis carcinomatosa [Unknown]
  - Dyspnoea [Recovered/Resolved]

NARRATIVE: CASE EVENT DATE: 20231218
